FAERS Safety Report 17496509 (Version 1)
Quarter: 2020Q1

REPORT INFORMATION
  Report Type: Spontaneous
  Country: IT (occurrence: IT)
  Receive Date: 20200304
  Receipt Date: 20200304
  Transmission Date: 20200409
  Serious: Yes (Disabling)
  Sender: FDA-Public Use
  Company Number: NVSC2020IT059542

PATIENT
  Age: 53 Year
  Sex: Female

DRUGS (5)
  1. ZOMETA [Suspect]
     Active Substance: ZOLEDRONIC ACID
     Indication: BREAST CANCER METASTATIC
     Dosage: 4 MG, CYCLIC
     Route: 042
     Dates: start: 20180423, end: 20190501
  2. DECAPEPTYL [Concomitant]
     Indication: BREAST CANCER METASTATIC
     Dosage: 3.75 MG
     Route: 065
     Dates: start: 20180501, end: 20190801
  3. RIBOCICLIB. [Concomitant]
     Active Substance: RIBOCICLIB
     Indication: BREAST CANCER METASTATIC
     Dosage: 600 MG
     Route: 048
     Dates: start: 20180712, end: 20190901
  4. LETROZOLE. [Concomitant]
     Active Substance: LETROZOLE
     Indication: BREAST CANCER METASTATIC
     Dosage: 2.5 MG
     Route: 048
     Dates: start: 20180501, end: 20190801
  5. DELTACORTENE [Concomitant]
     Active Substance: PREDNISONE
     Indication: SUPPORTIVE CARE
     Dosage: 5 MG
     Route: 048

REACTIONS (1)
  - Osteonecrosis of jaw [Not Recovered/Not Resolved]

NARRATIVE: CASE EVENT DATE: 20191004
